FAERS Safety Report 4576158-0 (Version None)
Quarter: 2005Q1

REPORT INFORMATION
  Report Type: 
  Country: None (occurrence: None)
  Receive Date: 20050204
  Receipt Date: 20050201
  Transmission Date: 20050727
  Serious: Yes (Hospitalization)
  Sender: FDA-Public Use
  Company Number: 2004063608

PATIENT
  Age: 56 Year
  Sex: Female

DRUGS (2)
  1. LIPITOR [Suspect]
     Indication: HYPERLIPIDAEMIA
     Dosage: 40 MG (40 MG, 1 IN 1 D), ORAL
     Route: 048
     Dates: start: 20040201, end: 20040901
  2. ACETYLSALICYLIC ACID SRT [Concomitant]

REACTIONS (1)
  - HYPERKERATOSIS [None]
